FAERS Safety Report 4940047-X (Version None)
Quarter: 2006Q1

REPORT INFORMATION
  Report Type: 
  Country: None (occurrence: None)
  Receive Date: 20060310
  Receipt Date: 20060206
  Transmission Date: 20060701
  Serious: Yes (Hospitalization)
  Sender: FDA-Public Use
  Company Number: JP-ROCHE-435795

PATIENT
  Age: 77 Year
  Sex: Male
  Weight: 50 kg

DRUGS (7)
  1. TAMIFLU [Suspect]
     Route: 048
     Dates: start: 20060204, end: 20060204
  2. TAMIFLU [Suspect]
     Route: 048
     Dates: start: 20060205, end: 20060205
  3. TAMIFLU [Suspect]
     Route: 048
     Dates: start: 20060206, end: 20060206
  4. ACETAMINOPHEN [Concomitant]
     Dosage: DOSE FORM REPORTED AS ORAL FORMULATION
     Route: 048
     Dates: start: 20060204
  5. ARTIST [Concomitant]
     Route: 048
     Dates: start: 20050810, end: 20060206
  6. WARFARIN SODIUM [Concomitant]
     Route: 048
     Dates: start: 20050810, end: 20060205
  7. ZYLORIC [Concomitant]
     Route: 048
     Dates: start: 20050815, end: 20060205

REACTIONS (1)
  - RHABDOMYOLYSIS [None]
